FAERS Safety Report 10373727 (Version 1)
Quarter: 2014Q1

REPORT INFORMATION
  Report Type: Spontaneous
  Country: US (occurrence: None)
  Receive Date: 20140306
  Receipt Date: 20140306
  Transmission Date: 20141002
  Serious: Yes (Hospitalization)
  Sender: FDA-Public Use
  Company Number: 163-21880-13072124

PATIENT
  Age: 69 Year
  Sex: Female

DRUGS (1)
  1. REVLIMID (LENALIDOMIDE) (5 MILLIGRAM, CAPSULES) [Suspect]
     Indication: MYELODYSPLASTIC SYNDROME
     Route: 048
     Dates: start: 200802

REACTIONS (5)
  - Confusional state [None]
  - Vomiting [None]
  - Diarrhoea [None]
  - Pyrexia [None]
  - Hypotension [None]
